FAERS Safety Report 24879681 (Version 3)
Quarter: 2025Q2

REPORT INFORMATION
  Report Type: Report from Study
  Country: US (occurrence: US)
  Receive Date: 20250123
  Receipt Date: 20250402
  Transmission Date: 20250716
  Serious: Yes (Hospitalization, Other)
  Sender: GILEAD
  Company Number: US-GILEAD-2025-0700873

PATIENT
  Sex: Female

DRUGS (27)
  1. AZTREONAM LYSINE [Suspect]
     Active Substance: AZTREONAM LYSINE
     Indication: Cystic fibrosis lung
     Dosage: 75 MG, TID [INHALE 1 VIAL (75 MG) VIA ALTERA NEBULIZER IN THE MORNING, AT NOON, AND BEFORE BEDTIME.
     Route: 055
  2. TRIKAFTA [Concomitant]
     Active Substance: ELEXACAFTOR\IVACAFTOR\TEZACAFTOR
  3. CREON [Concomitant]
     Active Substance: PANCRELIPASE AMYLASE\PANCRELIPASE LIPASE\PANCRELIPASE PROTEASE
  4. LORAZEPAM [Concomitant]
     Active Substance: LORAZEPAM
  5. METFORMIN HYDROCHLORIDE [Concomitant]
     Active Substance: METFORMIN HYDROCHLORIDE
  6. LAMICTAL [Concomitant]
     Active Substance: LAMOTRIGINE
  7. ADVAIR HFA [Concomitant]
     Active Substance: FLUTICASONE PROPIONATE\SALMETEROL XINAFOATE
  8. ZYRTEC [Concomitant]
     Active Substance: CETIRIZINE HYDROCHLORIDE
  9. FLUTICASONE [Concomitant]
     Active Substance: FLUTICASONE
  10. MIRALAX [Concomitant]
     Active Substance: POLYETHYLENE GLYCOL 3350
  11. ACRIVASTINE [Concomitant]
     Active Substance: ACRIVASTINE
  12. CITALOPRAM [Concomitant]
     Active Substance: CITALOPRAM
  13. TRAZODONE HYDROCHLORIDE [Concomitant]
     Active Substance: TRAZODONE HYDROCHLORIDE
  14. PULMOZYME [Concomitant]
     Active Substance: DORNASE ALFA
  15. TYLENOL [Concomitant]
     Active Substance: ACETAMINOPHEN
  16. SUMATRIPTAN SUCCINATE [Concomitant]
     Active Substance: SUMATRIPTAN SUCCINATE
  17. OMEPRAZOLE [Concomitant]
     Active Substance: OMEPRAZOLE
  18. FLUTICASONE PROPIONATE [Concomitant]
     Active Substance: FLUTICASONE PROPIONATE
  19. AZTREONAM [Concomitant]
     Active Substance: AZTREONAM
  20. AMITIZA [Concomitant]
     Active Substance: LUBIPROSTONE
  21. PROCHLORPERAZINE EDISYLATE [Concomitant]
     Active Substance: PROCHLORPERAZINE EDISYLATE
  22. COLACE [Concomitant]
     Active Substance: DOCUSATE SODIUM
  23. AZITHROMYCIN [Concomitant]
     Active Substance: AZITHROMYCIN
  24. INDOMETHACIN [Concomitant]
     Active Substance: INDOMETHACIN
  25. MELATONIN [Concomitant]
     Active Substance: MELATONIN
  26. SODIUM CHLORIDE [Concomitant]
     Active Substance: SODIUM CHLORIDE
  27. ALBUTEROL SULFATE [Concomitant]
     Active Substance: ALBUTEROL SULFATE

REACTIONS (2)
  - H1N1 influenza [Recovered/Resolved]
  - Cystic fibrosis [Recovered/Resolved]
